FAERS Safety Report 9408837 (Version 1)
Quarter: 2013Q3

REPORT INFORMATION
  Report Type: Report from Study
  Country: FR (occurrence: FR)
  Receive Date: 20130719
  Receipt Date: 20130719
  Transmission Date: 20140515
  Serious: Yes (Hospitalization)
  Sender: FDA-Public Use
  Company Number: FR-ROCHE-1248255

PATIENT
  Age: 72 Year
  Sex: Male
  Weight: 83.6 kg

DRUGS (9)
  1. RITUXIMAB [Suspect]
     Indication: CHRONIC LYMPHOCYTIC LEUKAEMIA
     Route: 042
     Dates: start: 20110712
  2. RITUXIMAB [Suspect]
     Route: 042
     Dates: start: 20130429
  3. FLUDARABINE [Suspect]
     Indication: CHRONIC LYMPHOCYTIC LEUKAEMIA
     Route: 048
     Dates: start: 20110713, end: 20111023
  4. CYCLOPHOSPHAMIDE [Suspect]
     Indication: CHRONIC LYMPHOCYTIC LEUKAEMIA
     Route: 048
     Dates: start: 20110713, end: 20111023
  5. COVERSYL [Concomitant]
     Route: 065
  6. FLUDEX (FRANCE) [Concomitant]
     Route: 065
  7. FLECAINE [Concomitant]
  8. KARDEGIC [Concomitant]
     Route: 065
  9. DEPAKINE [Concomitant]
     Route: 065

REACTIONS (2)
  - Syncope [Recovered/Resolved]
  - Increased bronchial secretion [Recovered/Resolved]
